FAERS Safety Report 9529557 (Version 1)
Quarter: 2013Q3

REPORT INFORMATION
  Report Type: Spontaneous
  Country: US (occurrence: US)
  Receive Date: 20130917
  Receipt Date: 20130917
  Transmission Date: 20140515
  Serious: Yes (Other)
  Sender: FDA-Public Use
  Company Number: US-GLAXOSMITHKLINE-A1041763A

PATIENT
  Age: 43 Year
  Sex: Female

DRUGS (1)
  1. BENLYSTA [Suspect]
     Indication: SYSTEMIC LUPUS ERYTHEMATOSUS
     Dosage: 850MG CYCLIC
     Route: 042
     Dates: start: 2012, end: 2012

REACTIONS (7)
  - Immunodeficiency [Unknown]
  - Pneumonia [Unknown]
  - Spinal cord injury [Unknown]
  - Influenza [Unknown]
  - Fall [Unknown]
  - Neck surgery [Unknown]
  - Neck injury [Unknown]
